FAERS Safety Report 12812080 (Version 3)
Quarter: 2016Q4

REPORT INFORMATION
  Report Type: Spontaneous
  Country: US (occurrence: US)
  Receive Date: 20161005
  Receipt Date: 20161014
  Transmission Date: 20170207
  Serious: Yes (Other)
  Sender: FDA-Public Use
  Company Number: US-JNJFOC-20161000200

PATIENT
  Sex: Female

DRUGS (1)
  1. SIMPONI [Suspect]
     Active Substance: GOLIMUMAB
     Indication: ARTHRITIS
     Route: 058
     Dates: start: 201609

REACTIONS (7)
  - Drug dose omission [Unknown]
  - Drug effect decreased [Unknown]
  - Injection site pain [Unknown]
  - Surgery [Unknown]
  - Arthritis [Not Recovered/Not Resolved]
  - Drug administration error [Unknown]
  - Underdose [Unknown]

NARRATIVE: CASE EVENT DATE: 201609
